FAERS Safety Report 13575500 (Version 1)
Quarter: 2017Q2

REPORT INFORMATION
  Report Type: Spontaneous
  Country: NL (occurrence: NL)
  Receive Date: 20170524
  Receipt Date: 20170524
  Transmission Date: 20170830
  Serious: Yes (Other)
  Sender: FDA-Public Use
  Company Number: NL-CONCORDIA PHARMACEUTICALS INC.-GSH201705-003004

PATIENT
  Sex: Female

DRUGS (1)
  1. PLAQUENIL [Suspect]
     Active Substance: HYDROXYCHLOROQUINE SULFATE
     Indication: RHEUMATIC DISORDER
     Route: 048
     Dates: start: 2016

REACTIONS (12)
  - Weight decreased [Unknown]
  - Diarrhoea [Recovered/Resolved]
  - Cardiomyopathy [Unknown]
  - Nervousness [Unknown]
  - Musculoskeletal discomfort [Unknown]
  - Decreased appetite [Unknown]
  - Gastrointestinal disorder [Unknown]
  - Atrophy [Unknown]
  - Mental impairment [Unknown]
  - Rash [Unknown]
  - Palpitations [Unknown]
  - Anaemia [Not Recovered/Not Resolved]
